FAERS Safety Report 8275918-2 (Version None)
Quarter: 2012Q2

REPORT INFORMATION
  Report Type: 
  Country: None (occurrence: None)
  Receive Date: 20120412
  Receipt Date: 20120409
  Transmission Date: 20120825
  Serious: No
  Sender: FDA-Public Use
  Company Number: US-PFIZER INC-2012067124

PATIENT
  Sex: Female

DRUGS (3)
  1. ATORVASTATIN CALCIUM [Suspect]
     Dosage: 20 MG, UNK
     Dates: start: 20120301
  2. LIPITOR [Suspect]
     Dosage: UNK
  3. ATORVASTATIN CALCIUM [Suspect]
     Dosage: 20 MG, UNK
     Route: 048
     Dates: start: 20120301, end: 20120301

REACTIONS (6)
  - HEART RATE INCREASED [None]
  - HYPERTENSION [None]
  - NAUSEA [None]
  - ABDOMINAL DISCOMFORT [None]
  - PALPITATIONS [None]
  - HEADACHE [None]
